FAERS Safety Report 9879664 (Version 1)
Quarter: 2014Q1

REPORT INFORMATION
  Report Type: Spontaneous
  Country: IT (occurrence: IT)
  Receive Date: 20140206
  Receipt Date: 20140206
  Transmission Date: 20141002
  Serious: Yes (Hospitalization)
  Sender: FDA-Public Use
  Company Number: IT-ACTAVIS-2014-01518

PATIENT
  Age: 59 Year
  Sex: Female

DRUGS (3)
  1. MIRTAZAPINE (UNKNOWN) [Suspect]
     Indication: PARKINSON^S DISEASE
     Dosage: UNK
     Route: 065
  2. VALIUM /00017001/ [Interacting]
     Indication: MEDICATION ERROR
     Dosage: 5 DROPS, TOTAL
     Route: 048
     Dates: start: 20120912, end: 20120912
  3. TAVOR                              /00273201/ [Concomitant]
     Indication: PRODUCT USED FOR UNKNOWN INDICATION
     Dosage: UNK
     Route: 065

REACTIONS (3)
  - Tremor [Recovering/Resolving]
  - Neurological symptom [Recovering/Resolving]
  - Labelled drug-drug interaction medication error [Unknown]
